FAERS Safety Report 8766278 (Version 1)
Quarter: 2012Q4

REPORT INFORMATION
  Report Type: 
  Country: CH (occurrence: CH)
  Receive Date: 20120904
  Receipt Date: 20120904
  Transmission Date: 20130627
  Serious: Yes (Death, Hospitalization)
  Sender: FDA-Public Use
  Company Number: CH-BAYER-2012-091404

PATIENT
  Age: 70 Year
  Sex: Female

DRUGS (7)
  1. ASPIRIN CARDIO [Suspect]
     Dosage: 100 mg, QD
     Route: 048
     Dates: end: 20120430
  2. PLAVIX [Suspect]
     Dosage: 75 mg, QD
     Route: 048
     Dates: end: 20120430
  3. BELOC ZOK [Concomitant]
     Dosage: 25 mg, BID
     Route: 048
  4. TRIATEC [Concomitant]
     Dosage: 5 mg, QD
     Route: 048
  5. PANTOZOL [Concomitant]
     Dosage: 20 mg, QD
     Route: 048
  6. SORTIS [Concomitant]
     Dosage: 20 mg, QD
     Route: 048
  7. DIAMICRON [Concomitant]
     Dosage: 80 mg, BID
     Route: 048

REACTIONS (3)
  - Cerebral haemorrhage [Fatal]
  - Hemiparesis [Fatal]
  - Syncope [Fatal]
